FAERS Safety Report 9417516 (Version 1)
Quarter: 2013Q3

REPORT INFORMATION
  Report Type: Spontaneous
  Country: US (occurrence: None)
  Receive Date: 20130722
  Receipt Date: 20130722
  Transmission Date: 20140515
  Serious: Yes (Disabling)
  Sender: FDA-Public Use
  Company Number: None

PATIENT
  Age: 71 Year
  Sex: Female
  Weight: 96.16 kg

DRUGS (2)
  1. AVELOX [Suspect]
     Indication: COUGH
     Dates: start: 20130424, end: 20130426
  2. AVELOX [Suspect]
     Indication: DIZZINESS
     Dates: start: 20130424, end: 20130426

REACTIONS (4)
  - Nasopharyngitis [None]
  - Dizziness [None]
  - Anosmia [None]
  - Malaise [None]
